FAERS Safety Report 5121207-4 (Version None)
Quarter: 2006Q4

REPORT INFORMATION
  Report Type: 
  Country: None (occurrence: None)
  Receive Date: 20061002
  Receipt Date: 20060915
  Transmission Date: 20070319
  Serious: Yes (Death)
  Sender: FDA-Public Use
  Company Number: US200609003993

PATIENT
  Age: 71 Year
  Sex: Female

DRUGS (3)
  1. ZYPREXA [Suspect]
     Indication: BIPOLAR DISORDER
     Dosage: 30 MG; SEE IMAGE
     Dates: start: 20060101, end: 20060101
  2. ZYPREXA [Suspect]
     Indication: BIPOLAR DISORDER
     Dosage: 30 MG; SEE IMAGE
     Dates: start: 20060101
  3. LITHIUM CARBONATE [Concomitant]

REACTIONS (5)
  - CARDIO-RESPIRATORY ARREST [None]
  - DIZZINESS [None]
  - PRESCRIBED OVERDOSE [None]
  - RESPIRATORY DEPRESSION [None]
  - THERAPEUTIC AGENT TOXICITY [None]
